FAERS Safety Report 14641817 (Version 1)
Quarter: 2018Q1

REPORT INFORMATION
  Report Type: Spontaneous
  Country: US (occurrence: US)
  Receive Date: 20180315
  Receipt Date: 20180315
  Transmission Date: 20180509
  Serious: Yes (Life-Threatening, Hospitalization, Disabling)
  Sender: FDA-Public Use
  Company Number: None

PATIENT
  Age: 86 Year
  Sex: Male
  Weight: 67 kg

DRUGS (2)
  1. PEMBROLIZUMAB. [Suspect]
     Active Substance: PEMBROLIZUMAB
     Indication: RENAL CANCER METASTATIC
     Dosage: ?          OTHER FREQUENCY:ONCE;?
     Route: 042
     Dates: start: 20171114, end: 20171114
  2. PEMBROLIZUMAB. [Suspect]
     Active Substance: PEMBROLIZUMAB
     Indication: TRANSITIONAL CELL CARCINOMA
     Dosage: ?          OTHER FREQUENCY:ONCE;?
     Route: 042
     Dates: start: 20171114, end: 20171114

REACTIONS (8)
  - Blood creatine phosphokinase increased [None]
  - Transaminases increased [None]
  - Neck pain [None]
  - Troponin increased [None]
  - Muscular weakness [None]
  - Respiratory failure [None]
  - Myositis [None]
  - Fatigue [None]

NARRATIVE: CASE EVENT DATE: 20171208
